FAERS Safety Report 15620966 (Version 1)
Quarter: 2018Q4

REPORT INFORMATION
  Report Type: Spontaneous
  Country: CH (occurrence: CH)
  Receive Date: 20181115
  Receipt Date: 20181115
  Transmission Date: 20190205
  Serious: Yes (Other)
  Sender: FDA-Public Use
  Company Number: CH-TEVA-2018-CH-972578

PATIENT
  Sex: Female

DRUGS (6)
  1. TAVEGYL [Concomitant]
     Active Substance: CLEMASTINE FUMARATE
     Dosage: 2 MG (H1 ANTAGONIST)
  2. PACLITAXEL-TEVA LIQUID [Suspect]
     Active Substance: PACLITAXEL
     Dosage: FORM STRENGTH 30MG/5ML
     Route: 065
  3. ONDANSETRON [Concomitant]
     Active Substance: ONDANSETRON
     Dosage: 8 MG
  4. ANTHROPOLOGIC MISTLETOE INFUSION [Concomitant]
  5. MEPHAMESON [Concomitant]
     Active Substance: DEXAMETHASONE
     Dosage: 8 MG
  6. ZANTAC [Concomitant]
     Active Substance: RANITIDINE HYDROCHLORIDE
     Dosage: H2 ANTAGONIST

REACTIONS (8)
  - Cognitive disorder [Recovered/Resolved]
  - Oxygen saturation decreased [Recovered/Resolved]
  - Erythema [Recovered/Resolved]
  - Dyspnoea [Recovered/Resolved]
  - Pyrexia [Recovered/Resolved]
  - Nausea [Recovered/Resolved]
  - Hypersensitivity [Recovered/Resolved]
  - Tachycardia [Recovered/Resolved]

NARRATIVE: CASE EVENT DATE: 20181030
